FAERS Safety Report 6032810-1 (Version None)
Quarter: 2009Q1

REPORT INFORMATION
  Report Type: 
  Country: None (occurrence: None)
  Receive Date: 20090107
  Receipt Date: 20090107
  Transmission Date: 20090719
  Serious: No
  Sender: FDA-Public Use
  Company Number: None

PATIENT

DRUGS (1)
  1. ALTACE [Suspect]
     Indication: HYPERTENSION
     Dosage: 10MG QD PO
     Route: 048
     Dates: start: 20081027, end: 20081223

REACTIONS (2)
  - DIZZINESS [None]
  - PRODUCT QUALITY ISSUE [None]
